FAERS Safety Report 22646783 (Version 15)
Quarter: 2024Q1

REPORT INFORMATION
  Report Type: Spontaneous
  Country: CA (occurrence: CA)
  Receive Date: 20230627
  Receipt Date: 20240314
  Transmission Date: 20240410
  Serious: Yes (Death, Life-Threatening, Hospitalization, Disabling, Other)
  Sender: FDA-Public Use
  Company Number: CA-SAKK-2023SA177830AA

PATIENT
  Age: 80 Year
  Sex: Male
  Weight: 69 kg

DRUGS (161)
  1. LANSOPRAZOLE [Suspect]
     Active Substance: LANSOPRAZOLE
     Indication: Antacid therapy
     Dosage: 30 MG, QD
     Route: 048
  2. LANSOPRAZOLE [Suspect]
     Active Substance: LANSOPRAZOLE
     Indication: Intentional product misuse
     Dosage: 30 MG, QD
  3. LANSOPRAZOLE [Suspect]
     Active Substance: LANSOPRAZOLE
     Indication: Off label use
  4. ACETAMINOPHEN [Suspect]
     Active Substance: ACETAMINOPHEN
     Indication: Product used for unknown indication
     Dosage: DOSE DESCRIPTION : 650 MG, QD
     Route: 048
  5. ACETAMINOPHEN [Suspect]
     Active Substance: ACETAMINOPHEN
     Indication: Off label use
     Dosage: DOSE DESCRIPTION : 5 MG, QD
     Route: 042
  6. ACETAMINOPHEN [Suspect]
     Active Substance: ACETAMINOPHEN
     Indication: Analgesic therapy
  7. ACETAMINOPHEN [Suspect]
     Active Substance: ACETAMINOPHEN
     Indication: Intentional product misuse
  8. ALLOPURINOL [Suspect]
     Active Substance: ALLOPURINOL
     Indication: Blood uric acid increased
     Dosage: DOSE DESCRIPTION : 100 MG
     Route: 048
  9. ALLOPURINOL [Suspect]
     Active Substance: ALLOPURINOL
     Indication: Product used for unknown indication
     Dosage: DOSE DESCRIPTION : 100 MG, QD
  10. ALLOPURINOL [Suspect]
     Active Substance: ALLOPURINOL
     Indication: Off label use
     Dosage: DOSE DESCRIPTION : 1 DF, QD
     Route: 048
  11. ALLOPURINOL [Suspect]
     Active Substance: ALLOPURINOL
     Indication: Intentional product misuse
  12. AMIODARONE HYDROCHLORIDE [Suspect]
     Active Substance: AMIODARONE HYDROCHLORIDE
     Indication: Ventricular fibrillation
     Dosage: DOSE DESCRIPTION : 150 MG, QD
     Route: 042
  13. AMIODARONE HYDROCHLORIDE [Suspect]
     Active Substance: AMIODARONE HYDROCHLORIDE
     Indication: Drug therapy
     Dosage: DOSE DESCRIPTION : UNK
     Route: 042
  14. AMIODARONE HYDROCHLORIDE [Suspect]
     Active Substance: AMIODARONE HYDROCHLORIDE
     Indication: Intentional product misuse
     Dosage: DOSE DESCRIPTION : UNK
     Route: 042
  15. AMIODARONE HYDROCHLORIDE [Suspect]
     Active Substance: AMIODARONE HYDROCHLORIDE
     Dosage: DOSE DESCRIPTION : UNK
     Route: 042
  16. AMIODARONE HYDROCHLORIDE [Suspect]
     Active Substance: AMIODARONE HYDROCHLORIDE
     Dosage: DOSE DESCRIPTION : UNK
     Route: 042
  17. AMIODARONE HYDROCHLORIDE [Suspect]
     Active Substance: AMIODARONE HYDROCHLORIDE
     Dosage: DOSE DESCRIPTION : UNK
     Route: 042
  18. BETAMETHASONE [Suspect]
     Active Substance: BETAMETHASONE\BETAMETHASONE DIPROPIONATE
     Indication: Swelling
     Dosage: DOSE DESCRIPTION : UNK, PRN
     Route: 061
  19. BETAMETHASONE [Suspect]
     Active Substance: BETAMETHASONE\BETAMETHASONE DIPROPIONATE
     Dosage: DOSE DESCRIPTION : UNK
  20. BETAMETHASONE [Suspect]
     Active Substance: BETAMETHASONE\BETAMETHASONE DIPROPIONATE
     Dosage: DOSE DESCRIPTION : UNK
  21. CEFTRIAXONE SODIUM [Suspect]
     Active Substance: CEFTRIAXONE SODIUM
     Indication: Bacterial infection
     Dosage: DOSE DESCRIPTION : 2 G, 1 EVERY 1 DAYS
     Route: 042
  22. CEFTRIAXONE SODIUM [Suspect]
     Active Substance: CEFTRIAXONE SODIUM
     Dosage: DOSE DESCRIPTION : UNK
  23. GABAPENTIN [Suspect]
     Active Substance: GABAPENTIN
     Indication: Neuralgia
     Dosage: DOSE DESCRIPTION : 100 MG, QD
     Route: 048
  24. GABAPENTIN [Suspect]
     Active Substance: GABAPENTIN
     Dosage: DOSE DESCRIPTION : UNK
     Route: 048
  25. GABAPENTIN [Suspect]
     Active Substance: GABAPENTIN
     Dosage: DOSE DESCRIPTION : UNK
     Route: 048
  26. GABAPENTIN [Suspect]
     Active Substance: GABAPENTIN
     Dosage: DOSE DESCRIPTION : UNK
     Route: 048
  27. INSULIN ASPART [Suspect]
     Active Substance: INSULIN ASPART
     Indication: Diabetes mellitus
     Dosage: DOSE DESCRIPTION : UNK
     Route: 058
  28. INSULIN ASPART [Suspect]
     Active Substance: INSULIN ASPART
     Dosage: DOSE DESCRIPTION : UNK
  29. INSULIN ASPART [Suspect]
     Active Substance: INSULIN ASPART
     Dosage: DOSE DESCRIPTION : UNK
     Route: 058
  30. INSULIN ASPART [Suspect]
     Active Substance: INSULIN ASPART
     Dosage: DOSE DESCRIPTION : UNK
     Route: 065
  31. METRONIDAZOLE [Suspect]
     Active Substance: METRONIDAZOLE
     Indication: Off label use
     Dosage: DOSE DESCRIPTION : 500 MG, TID
     Route: 048
  32. METRONIDAZOLE [Suspect]
     Active Substance: METRONIDAZOLE
     Indication: Intentional product misuse
     Dosage: DOSE DESCRIPTION : 500 UNK
     Route: 048
  33. METRONIDAZOLE [Suspect]
     Active Substance: METRONIDAZOLE
     Indication: Bacterial infection
     Dosage: DOSE DESCRIPTION : 1MG
  34. METRONIDAZOLE [Suspect]
     Active Substance: METRONIDAZOLE
     Indication: Intentional product misuse
     Dosage: DOSE DESCRIPTION : UNK
     Route: 048
  35. METRONIDAZOLE [Suspect]
     Active Substance: METRONIDAZOLE
     Dosage: DOSE DESCRIPTION : 1500 MG
     Route: 048
  36. METRONIDAZOLE [Suspect]
     Active Substance: METRONIDAZOLE
     Dosage: DOSE DESCRIPTION : 1500 UNK
     Route: 048
  37. METRONIDAZOLE [Suspect]
     Active Substance: METRONIDAZOLE
     Dosage: DOSE DESCRIPTION : 1500 UNK
     Route: 048
  38. METRONIDAZOLE [Suspect]
     Active Substance: METRONIDAZOLE
     Dosage: DOSE DESCRIPTION : 1500 UNK
     Route: 048
  39. METRONIDAZOLE [Suspect]
     Active Substance: METRONIDAZOLE
     Dosage: DOSE DESCRIPTION : 1500 UNK
     Route: 048
  40. METRONIDAZOLE [Suspect]
     Active Substance: METRONIDAZOLE
     Dosage: DOSE DESCRIPTION : 1 EVERY 1 DAYS
     Route: 048
  41. METRONIDAZOLE [Suspect]
     Active Substance: METRONIDAZOLE
     Dosage: DOSE DESCRIPTION : 500 UG, Q8H
     Route: 048
  42. METRONIDAZOLE [Suspect]
     Active Substance: METRONIDAZOLE
     Dosage: DOSE DESCRIPTION : 1500 UG, QD
     Route: 048
  43. METRONIDAZOLE [Suspect]
     Active Substance: METRONIDAZOLE
     Dosage: DOSE DESCRIPTION : 4500 MG, QD
     Route: 048
  44. METRONIDAZOLE [Suspect]
     Active Substance: METRONIDAZOLE
     Dosage: DOSE DESCRIPTION : UNK, Q3H
     Route: 048
  45. METRONIDAZOLE [Suspect]
     Active Substance: METRONIDAZOLE
     Dosage: DOSE DESCRIPTION : 500 MICROGRAM, Q8HR
     Route: 048
  46. METRONIDAZOLE [Suspect]
     Active Substance: METRONIDAZOLE
     Dosage: 500 MICROGRAM, Q8HR
     Route: 048
  47. METRONIDAZOLE [Suspect]
     Active Substance: METRONIDAZOLE
     Dosage: 500 MILLIGRAM, Q8HR
     Route: 048
  48. METRONIDAZOLE [Suspect]
     Active Substance: METRONIDAZOLE
     Dosage: 1500 MG, QD
     Route: 048
  49. METRONIDAZOLE [Suspect]
     Active Substance: METRONIDAZOLE
     Dosage: 500 MG, QD
     Route: 048
  50. METRONIDAZOLE [Suspect]
     Active Substance: METRONIDAZOLE
     Dosage: 500 MG, TID
     Route: 048
  51. METRONIDAZOLE [Suspect]
     Active Substance: METRONIDAZOLE
     Dosage: 1500 MG, TID
     Route: 048
  52. METRONIDAZOLE [Suspect]
     Active Substance: METRONIDAZOLE
     Dosage: 500 UG, QD
     Route: 048
  53. METRONIDAZOLE [Suspect]
     Active Substance: METRONIDAZOLE
     Dosage: 500 MG
     Route: 048
  54. METRONIDAZOLE [Suspect]
     Active Substance: METRONIDAZOLE
     Dosage: TID
  55. METRONIDAZOLE [Suspect]
     Active Substance: METRONIDAZOLE
     Dosage: Q3H
     Route: 048
  56. ONDANSETRON [Suspect]
     Active Substance: ONDANSETRON
     Indication: Vomiting
     Dosage: DOSE DESCRIPTION : 40 MG, 1 EVERY 1 DAYS
     Route: 042
  57. ONDANSETRON [Suspect]
     Active Substance: ONDANSETRON
     Indication: Nausea
     Dosage: DOSE DESCRIPTION : 12 UNK
     Route: 042
  58. ONDANSETRON [Suspect]
     Active Substance: ONDANSETRON
     Indication: Off label use
     Dosage: DOSE DESCRIPTION : UNK
     Route: 065
  59. ONDANSETRON [Suspect]
     Active Substance: ONDANSETRON
     Dosage: DOSE DESCRIPTION : 41.14 MG, 1 EVERY 8 HOURS
  60. ONDANSETRON [Suspect]
     Active Substance: ONDANSETRON
     Dosage: DOSE DESCRIPTION : 12 MG, 1 EVERY 1 DAYS
  61. ONDANSETRON [Suspect]
     Active Substance: ONDANSETRON
     Dosage: DOSE DESCRIPTION : 12.0 MG, 1 EVERY 8 HOURS
  62. ONDANSETRON [Suspect]
     Active Substance: ONDANSETRON
     Dosage: DOSE DESCRIPTION : 8 MG, 1 EVERY 1 DAYS
  63. ONDANSETRON [Suspect]
     Active Substance: ONDANSETRON
     Dosage: DOSE DESCRIPTION : 4 MG, QD
     Route: 042
  64. ONDANSETRON [Suspect]
     Active Substance: ONDANSETRON
     Dosage: DOSE DESCRIPTION : 40 MG, TID
     Route: 042
  65. ONDANSETRON [Suspect]
     Active Substance: ONDANSETRON
     Dosage: DOSE DESCRIPTION : 4 MG, 1 EVERY 8 HOURS
  66. ONDANSETRON [Suspect]
     Active Substance: ONDANSETRON
     Dosage: DOSE DESCRIPTION : UNK
  67. ONDANSETRON [Suspect]
     Active Substance: ONDANSETRON
     Dosage: DOSE DESCRIPTION : 41.14 MG,1 EVERY 8 HOURS
  68. ONDANSETRON [Suspect]
     Active Substance: ONDANSETRON
     Dosage: DOSE DESCRIPTION : 4 MG
  69. ONDANSETRON [Suspect]
     Active Substance: ONDANSETRON
     Dosage: DOSE DESCRIPTION : 24.0 MG, 1 EVERY 8 HOURS
  70. ONDANSETRON [Suspect]
     Active Substance: ONDANSETRON
     Dosage: DOSE DESCRIPTION : 12 MG, 1 EVERY 8 HOURS
  71. ONDANSETRON [Suspect]
     Active Substance: ONDANSETRON
     Dosage: DOSE DESCRIPTION : 60 MG, 1 EVERY 1 DAYS
  72. ONDANSETRON [Suspect]
     Active Substance: ONDANSETRON
     Dosage: DOSE DESCRIPTION : 14.14 MG, 1 EVERY 8 HOURS
  73. ONDANSETRON [Suspect]
     Active Substance: ONDANSETRON
     Dosage: DOSE DESCRIPTION : 1 DF
  74. ONDANSETRON [Suspect]
     Active Substance: ONDANSETRON
     Dosage: DOSE DESCRIPTION : 1 DF, 1 EVERY 6 HOURS
  75. ONDANSETRON [Suspect]
     Active Substance: ONDANSETRON
     Dosage: DOSE DESCRIPTION : 1 DF, 1 EVERY 8 HOURS
  76. ONDANSETRON [Suspect]
     Active Substance: ONDANSETRON
     Dosage: DOSE DESCRIPTION : 1 DF, 1 EVERY 1 DAYS
  77. ONDANSETRON [Suspect]
     Active Substance: ONDANSETRON
     Dosage: DOSE DESCRIPTION : 1 DF, 1 EVERY 1 DAYS
  78. ONDANSETRON [Suspect]
     Active Substance: ONDANSETRON
     Dosage: DOSE DESCRIPTION : 12 MG, TID
     Route: 042
  79. ONDANSETRON [Suspect]
     Active Substance: ONDANSETRON
     Dosage: DOSE DESCRIPTION : UNK
  80. ONDANSETRON [Suspect]
     Active Substance: ONDANSETRON
     Dosage: DOSE DESCRIPTION : 24 MG, 1 EVERY 8 HOURS
  81. ONDANSETRON [Suspect]
     Active Substance: ONDANSETRON
     Dosage: DOSE DESCRIPTION : 36 MG, Q8H
     Route: 042
  82. ONDANSETRON [Suspect]
     Active Substance: ONDANSETRON
     Dosage: DOSE DESCRIPTION : 4.0 MG, 1 EVERY 8 HOURS
     Route: 042
  83. ONDANSETRON [Suspect]
     Active Substance: ONDANSETRON
     Dosage: DOSE DESCRIPTION : 108 UNK
     Route: 042
  84. ONDANSETRON [Suspect]
     Active Substance: ONDANSETRON
     Dosage: DOSE DESCRIPTION : 8 MG, Q8H
     Route: 042
  85. ONDANSETRON [Suspect]
     Active Substance: ONDANSETRON
     Dosage: DOSE DESCRIPTION : 41.14 MG, Q8H
     Route: 042
  86. ONDANSETRON [Suspect]
     Active Substance: ONDANSETRON
     Dosage: DOSE DESCRIPTION : 24 MG, Q8H
     Route: 042
  87. ONDANSETRON [Suspect]
     Active Substance: ONDANSETRON
     Dosage: DOSE DESCRIPTION : 4 MG, TID
     Route: 042
  88. ONDANSETRON [Suspect]
     Active Substance: ONDANSETRON
     Dosage: DOSE DESCRIPTION : 12 MG, QD
     Route: 042
  89. ONDANSETRON [Suspect]
     Active Substance: ONDANSETRON
     Dosage: DOSE DESCRIPTION : 12 MG
     Route: 042
  90. ONDANSETRON [Suspect]
     Active Substance: ONDANSETRON
     Dosage: DOSE DESCRIPTION : 41.14 MG
     Route: 042
  91. ONDANSETRON [Suspect]
     Active Substance: ONDANSETRON
     Dosage: DOSE DESCRIPTION : 41.14 MG
     Route: 042
  92. ONDANSETRON [Suspect]
     Active Substance: ONDANSETRON
     Dosage: DOSE DESCRIPTION : 1 DF, Q8H
     Route: 042
  93. ONDANSETRON [Suspect]
     Active Substance: ONDANSETRON
     Dosage: DOSE DESCRIPTION : 4 MG, Q8H
     Route: 042
  94. ONDANSETRON [Suspect]
     Active Substance: ONDANSETRON
     Dosage: DOSE DESCRIPTION : 1 DF, QD
     Route: 042
  95. ONDANSETRON [Suspect]
     Active Substance: ONDANSETRON
     Dosage: DOSE DESCRIPTION : 12 MG
     Route: 042
  96. ONDANSETRON [Suspect]
     Active Substance: ONDANSETRON
     Dosage: DOSE DESCRIPTION : 1 DF, Q6H
     Route: 042
  97. ONDANSETRON [Suspect]
     Active Substance: ONDANSETRON
     Dosage: DOSE DESCRIPTION : 12 MG, QD
     Route: 042
  98. ONDANSETRON [Suspect]
     Active Substance: ONDANSETRON
     Dosage: DOSE DESCRIPTION : 1 DF
     Route: 042
  99. ONDANSETRON [Suspect]
     Active Substance: ONDANSETRON
     Dosage: DOSE DESCRIPTION : 40 MG, QD
     Route: 042
  100. ONDANSETRON [Suspect]
     Active Substance: ONDANSETRON
     Dosage: DOSE DESCRIPTION : 36 MG, QD
     Route: 042
  101. ONDANSETRON [Suspect]
     Active Substance: ONDANSETRON
     Dosage: DOSE DESCRIPTION : 36 MG, Q8H
     Route: 042
  102. PYRIDOXINE HYDROCHLORIDE [Suspect]
     Active Substance: PYRIDOXINE HYDROCHLORIDE
     Indication: Vitamin supplementation
     Dosage: DOSE DESCRIPTION : UNK
     Route: 048
  103. PYRIDOXINE HYDROCHLORIDE [Suspect]
     Active Substance: PYRIDOXINE HYDROCHLORIDE
     Dosage: DOSE DESCRIPTION : UNK
     Route: 048
  104. PYRIDOXINE HYDROCHLORIDE [Suspect]
     Active Substance: PYRIDOXINE HYDROCHLORIDE
     Dosage: DOSE DESCRIPTION : UNK
     Route: 048
  105. PYRIDOXINE HYDROCHLORIDE [Suspect]
     Active Substance: PYRIDOXINE HYDROCHLORIDE
     Dosage: DOSE DESCRIPTION : UNK
  106. ALBUTEROL SULFATE [Suspect]
     Active Substance: ALBUTEROL SULFATE
     Indication: Chronic obstructive pulmonary disease
     Dosage: DOSE DESCRIPTION : UNK
     Route: 055
  107. ALBUTEROL SULFATE [Suspect]
     Active Substance: ALBUTEROL SULFATE
     Indication: Off label use
     Dosage: DOSE DESCRIPTION : UNK, QD
     Route: 055
  108. ALBUTEROL SULFATE [Suspect]
     Active Substance: ALBUTEROL SULFATE
     Indication: Intentional product misuse
     Dosage: DOSE DESCRIPTION : UNK
  109. ALBUTEROL SULFATE [Suspect]
     Active Substance: ALBUTEROL SULFATE
     Dosage: DOSE DESCRIPTION : UNK
  110. SIMVASTATIN [Suspect]
     Active Substance: SIMVASTATIN
     Indication: Blood cholesterol increased
     Dosage: DOSE DESCRIPTION : 40.0 MG, 1 EVERY 1 DAYS
     Route: 048
  111. SIMVASTATIN [Suspect]
     Active Substance: SIMVASTATIN
     Indication: Vitamin supplementation
     Dosage: DOSE DESCRIPTION : UNK
     Route: 048
  112. SIMVASTATIN [Suspect]
     Active Substance: SIMVASTATIN
     Dosage: DOSE DESCRIPTION : 40 MG, QD
     Route: 048
  113. SIMVASTATIN [Suspect]
     Active Substance: SIMVASTATIN
     Dosage: DOSE DESCRIPTION : 40.0 MG, 1 EVERY 1 DAYS
     Route: 048
  114. SIMVASTATIN [Suspect]
     Active Substance: SIMVASTATIN
     Dosage: DOSE DESCRIPTION : UNK
     Route: 048
  115. ATROVENT [Suspect]
     Active Substance: IPRATROPIUM BROMIDE
     Indication: Sleep disorder therapy
     Dosage: UNK UNK, QID
     Route: 048
  116. ATROVENT [Suspect]
     Active Substance: IPRATROPIUM BROMIDE
     Indication: Dyspnoea
     Dosage: DOSE DESCRIPTION : UNK
     Route: 048
  117. ATROVENT [Suspect]
     Active Substance: IPRATROPIUM BROMIDE
     Dosage: DOSE DESCRIPTION : UNK
     Route: 048
  118. ATROVENT [Suspect]
     Active Substance: IPRATROPIUM BROMIDE
     Dosage: DOSE DESCRIPTION : UNK
  119. SODIUM FERRIC GLUCONATE COMPLEX [Suspect]
     Active Substance: SODIUM FERRIC GLUCONATE COMPLEX
     Indication: Iron deficiency
     Dosage: DOSE DESCRIPTION : 125 MG, QM
     Route: 042
  120. SODIUM FERRIC GLUCONATE COMPLEX [Suspect]
     Active Substance: SODIUM FERRIC GLUCONATE COMPLEX
     Route: 042
  121. SODIUM FERRIC GLUCONATE COMPLEX [Suspect]
     Active Substance: SODIUM FERRIC GLUCONATE COMPLEX
     Dosage: DOSE DESCRIPTION : UNK
     Route: 042
  122. SODIUM FERRIC GLUCONATE COMPLEX [Suspect]
     Active Substance: SODIUM FERRIC GLUCONATE COMPLEX
     Dosage: DOSE DESCRIPTION : UNK
     Route: 042
  123. WARFARIN SODIUM [Suspect]
     Active Substance: WARFARIN SODIUM
     Indication: Thrombosis
     Dosage: DOSE DESCRIPTION : 2 MG, QD
     Route: 048
  124. WARFARIN SODIUM [Suspect]
     Active Substance: WARFARIN SODIUM
     Dosage: DOSE DESCRIPTION : UNK
  125. WARFARIN SODIUM [Suspect]
     Active Substance: WARFARIN SODIUM
     Dosage: DOSE DESCRIPTION : UNK
  126. SODIUM PICOSULFATE [Suspect]
     Active Substance: SODIUM PICOSULFATE
     Indication: Constipation
     Dosage: DOSE DESCRIPTION : 10 MG, PRN
     Route: 054
  127. SODIUM PICOSULFATE [Suspect]
     Active Substance: SODIUM PICOSULFATE
  128. FLUTICASONE FUROATE [Suspect]
     Active Substance: FLUTICASONE FUROATE
     Indication: Product used for unknown indication
     Dosage: DOSE DESCRIPTION : UNK
  129. CALCIUM GLUCONATE [Suspect]
     Active Substance: CALCIUM GLUCONATE
     Dosage: DOSE DESCRIPTION : UNK
  130. ASCORBIC ACID [Suspect]
     Active Substance: ASCORBIC ACID
     Dosage: DOSE DESCRIPTION : UNK
  131. RIBOFLAVIN [Suspect]
     Active Substance: RIBOFLAVIN
     Dosage: DOSE DESCRIPTION : UNK
  132. AMLODIPINE [Suspect]
     Active Substance: AMLODIPINE BESYLATE
     Dosage: UNK
  133. ALUMINUM HYDROXIDE\MAGNESIUM HYDROXIDE [Suspect]
     Active Substance: ALUMINUM HYDROXIDE\MAGNESIUM HYDROXIDE
     Indication: Constipation
     Dosage: UNK
     Route: 054
  134. ALUMINUM HYDROXIDE\MAGNESIUM HYDROXIDE [Suspect]
     Active Substance: ALUMINUM HYDROXIDE\MAGNESIUM HYDROXIDE
     Dosage: DOSE DESCRIPTION : 133 MG
     Route: 054
  135. ALUMINUM HYDROXIDE\MAGNESIUM HYDROXIDE [Suspect]
     Active Substance: ALUMINUM HYDROXIDE\MAGNESIUM HYDROXIDE
     Dosage: DOSE DESCRIPTION : 133 MILLIGRAM
  136. ALUMINUM HYDROXIDE\MAGNESIUM HYDROXIDE [Suspect]
     Active Substance: ALUMINUM HYDROXIDE\MAGNESIUM HYDROXIDE
     Dosage: DOSE DESCRIPTION : 133 MILLILITER
     Route: 054
  137. BISMUTH SUBSALICYLATE [Suspect]
     Active Substance: BISMUTH SUBSALICYLATE
     Indication: Constipation
     Dosage: DOSE DESCRIPTION : UNK
  138. BISMUTH SUBSALICYLATE [Suspect]
     Active Substance: BISMUTH SUBSALICYLATE
     Dosage: DOSE DESCRIPTION : 133.0 ML
  139. DULCOLAX (BISACODYL) [Suspect]
     Active Substance: BISACODYL
     Indication: Constipation
     Dosage: DOSE DESCRIPTION : 10.0 MG, QD
     Route: 054
  140. DULCOLAX (BISACODYL) [Suspect]
     Active Substance: BISACODYL
     Dosage: DOSE DESCRIPTION : 10.0 MG, QD
     Route: 054
  141. DULCOLAX (BISACODYL) [Suspect]
     Active Substance: BISACODYL
     Dosage: DOSE DESCRIPTION : 10.0 MG, QD
     Route: 054
  142. DULCOLAX (BISACODYL) [Suspect]
     Active Substance: BISACODYL
     Dosage: DOSE DESCRIPTION : 10.0 MG, QD
     Route: 054
  143. DULCOLAX (BISACODYL) [Suspect]
     Active Substance: BISACODYL
     Dosage: DOSE DESCRIPTION : 10.0 MG, QD
     Route: 054
  144. DULCOLAX (BISACODYL) [Suspect]
     Active Substance: BISACODYL
     Dosage: DOSE DESCRIPTION : 10.0 MG, QD
     Route: 054
  145. DULCOLAX (BISACODYL) [Suspect]
     Active Substance: BISACODYL
     Dosage: DOSE DESCRIPTION : 10.0 MG, QD
     Route: 054
  146. DULCOLAX (BISACODYL) [Suspect]
     Active Substance: BISACODYL
     Dosage: DOSE DESCRIPTION : 10.0 MG, QD
     Route: 065
  147. VITAMIN A PALMITATE [Suspect]
     Active Substance: VITAMIN A PALMITATE
     Indication: Constipation
     Dosage: DOSE DESCRIPTION : 17.0 G, 1 EVERY 1 DAYS
  148. THEOPHYLLINE [Suspect]
     Active Substance: THEOPHYLLINE
     Indication: Product used for unknown indication
  149. THEOPHYLLINE [Suspect]
     Active Substance: THEOPHYLLINE
     Indication: Product used for unknown indication
     Dosage: DOSE DESCRIPTION : UNK
  150. CALCIUM CARBONATE [Suspect]
     Active Substance: CALCIUM CARBONATE
     Indication: Product used for unknown indication
     Dosage: DOSE DESCRIPTION : UNK
  151. CALCIUM CARBONATE [Suspect]
     Active Substance: CALCIUM CARBONATE
     Dosage: DOSE DESCRIPTION : UNK
  152. MAALOX ANTACID [Suspect]
     Active Substance: ALUMINUM HYDROXIDE\DIMETHICONE\MAGNESIUM HYDROXIDE
     Indication: Constipation
     Dosage: 133 MG
     Route: 054
  153. MAALOX ANTACID [Suspect]
     Active Substance: ALUMINUM HYDROXIDE\DIMETHICONE\MAGNESIUM HYDROXIDE
     Dosage: 133 MILLIGRAM
  154. MAALOX ANTACID [Suspect]
     Active Substance: ALUMINUM HYDROXIDE\DIMETHICONE\MAGNESIUM HYDROXIDE
     Dosage: 133 MILLILITER
     Route: 054
  155. MAALOX ANTACID [Suspect]
     Active Substance: ALUMINUM HYDROXIDE\DIMETHICONE\MAGNESIUM HYDROXIDE
     Dosage: 133 MILLIGRAM
  156. MAALOX ANTACID [Suspect]
     Active Substance: ALUMINUM HYDROXIDE\DIMETHICONE\MAGNESIUM HYDROXIDE
     Dosage: 133 ML
     Route: 054
  157. SODIUM BICARBONATE [Suspect]
     Active Substance: SODIUM BICARBONATE
     Indication: Nutritional supplementation
     Dosage: UNK
  158. POLYETHYLENE GLYCOL 4000 [Suspect]
     Active Substance: POLYETHYLENE GLYCOL 4000
     Dosage: UNK UNK, QD
  159. XYLOMETAZOLINE HYDROCHLORIDE [Suspect]
     Active Substance: XYLOMETAZOLINE HYDROCHLORIDE
     Indication: Dyspnoea
     Dosage: UNK
  160. DULCOLAX (BISACODYL) [Suspect]
     Active Substance: BISACODYL
     Indication: Constipation
     Dosage: 10 MG, QD
     Route: 054
  161. VITAMIN A PALMITATE [Suspect]
     Active Substance: VITAMIN A PALMITATE
     Indication: Constipation
     Dosage: 17 MG, QD

REACTIONS (2)
  - Abdominal distension [Fatal]
  - Ventricular fibrillation [Fatal]
